FAERS Safety Report 9069712 (Version 3)
Quarter: 2013Q2

REPORT INFORMATION
  Report Type: Spontaneous
  Country: AT (occurrence: AT)
  Receive Date: 20130215
  Receipt Date: 20130417
  Transmission Date: 20140414
  Serious: Yes (Hospitalization)
  Sender: FDA-Public Use
  Company Number: AT-ELI_LILLY_AND_COMPANY-AT201301008391

PATIENT
  Age: 64 Year
  Sex: Male
  Weight: 78 kg

DRUGS (12)
  1. EFIENT [Suspect]
     Indication: STENT PLACEMENT
     Dosage: 60 MG, SINGLE
     Route: 048
     Dates: start: 20100927, end: 20100927
  2. EFIENT [Suspect]
     Dosage: 10 MG, QD
     Route: 048
     Dates: start: 20100928, end: 20110707
  3. EFIENT [Suspect]
     Dosage: 5 MG, QD
     Route: 048
     Dates: start: 20110711, end: 20110716
  4. EFIENT [Suspect]
     Dosage: 10 MG, QD
     Route: 048
     Dates: start: 20110716
  5. NOMEXOR [Concomitant]
     Dosage: 5 MG, QD
  6. THROMBO ASS [Concomitant]
     Dosage: 100 MG, QD
  7. CRESTOR [Concomitant]
     Dosage: 10 MG, QD
  8. RAMIPRIL [Concomitant]
     Dosage: 2.5 MG, BID
  9. AMLODIPIN                          /00972401/ [Concomitant]
     Dosage: 10 MG, QD
  10. LAEVOLAC [Concomitant]
  11. UNASYN [Concomitant]
     Dosage: 3 G, UNK
     Route: 042
  12. PERFALGAN [Concomitant]
     Route: 042

REACTIONS (7)
  - Syncope [Recovered/Resolved]
  - Kidney contusion [Recovered/Resolved]
  - Renal failure acute [Recovered/Resolved]
  - Perirenal haematoma [Recovered/Resolved]
  - Haemorrhagic anaemia [Recovered/Resolved]
  - Rib fracture [Recovered/Resolved]
  - Concussion [Recovered/Resolved]
